FAERS Safety Report 8947543 (Version 3)
Quarter: 2013Q1

REPORT INFORMATION
  Report Type: Report from Study
  Country: NL (occurrence: NL)
  Receive Date: 20121205
  Receipt Date: 20130215
  Transmission Date: 20140127
  Serious: Yes (Death, Hospitalization)
  Sender: FDA-Public Use
  Company Number: NL-ROCHE-1144526

PATIENT
  Age: 68 Year
  Sex: Male

DRUGS (3)
  1. CAPECITABINE [Suspect]
     Indication: GASTRIC CANCER
     Dosage: DATE OF LAST DOSE PRIOR TO SAE: 18/OCT/2012
     Route: 048
     Dates: start: 20120817
  2. EPIRUBICIN [Suspect]
     Indication: GASTRIC CANCER
     Dosage: DATE OF LAST DOSE PRIOR TO SAE:09/OCT/2012
     Route: 042
     Dates: start: 20120817
  3. PLATINUM [Suspect]
     Indication: GASTRIC CANCER
     Dosage: DATE OF LAST DOSE PRIOR TO SAE: 09/OCT/2012
     Route: 042
     Dates: start: 20120817

REACTIONS (5)
  - Arterial haemorrhage [Fatal]
  - Lung infiltration [Recovering/Resolving]
  - Wound abscess [Not Recovered/Not Resolved]
  - Gastrointestinal anastomotic leak [Recovering/Resolving]
  - Pneumonia [Not Recovered/Not Resolved]
